FAERS Safety Report 14868145 (Version 1)
Quarter: 2018Q2

REPORT INFORMATION
  Report Type: Spontaneous
  Country: IN (occurrence: IN)
  Receive Date: 20180509
  Receipt Date: 20180509
  Transmission Date: 20180711
  Serious: Yes (Other)
  Sender: FDA-Public Use
  Company Number: IN-SUN PHARMACEUTICAL INDUSTRIES LTD-2018R1-171909

PATIENT
  Age: 45 Year
  Sex: Female

DRUGS (5)
  1. MORPHINE [Concomitant]
     Active Substance: MORPHINE
     Indication: MAINTENANCE OF ANAESTHESIA
     Dosage: UNK
     Route: 065
  2. DEXMEDETOMIDINE. [Suspect]
     Active Substance: DEXMEDETOMIDINE
     Dosage: 0.5 ?G/KG, Q1H
     Route: 065
  3. PROPOFOL. [Concomitant]
     Active Substance: PROPOFOL
     Indication: MAINTENANCE OF ANAESTHESIA
     Route: 065
  4. VECURONIUM [Concomitant]
     Active Substance: VECURONIUM BROMIDE
     Indication: MAINTENANCE OF ANAESTHESIA
     Route: 065
  5. DEXMEDETOMIDINE. [Suspect]
     Active Substance: DEXMEDETOMIDINE
     Indication: PRODUCT USED FOR UNKNOWN INDICATION
     Dosage: 0.3 ?G/KG, Q1H
     Route: 065

REACTIONS (4)
  - Urine output increased [Recovered/Resolved]
  - Urine sodium abnormal [Recovered/Resolved]
  - Blood glucose abnormal [Recovered/Resolved]
  - Blood sodium abnormal [Recovered/Resolved]
